FAERS Safety Report 9853226 (Version 1)
Quarter: 2014Q1

REPORT INFORMATION
  Report Type: Spontaneous
  Country: GB (occurrence: GB)
  Receive Date: 20140129
  Receipt Date: 20140129
  Transmission Date: 20141002
  Serious: Yes (Death)
  Sender: FDA-Public Use
  Company Number: GB-JNJFOC-20140115590

PATIENT
  Age: 78 Year
  Sex: Female
  Weight: 84.5 kg

DRUGS (10)
  1. XARELTO [Suspect]
     Indication: EMBOLISM VENOUS
     Route: 048
     Dates: start: 20130724
  2. XARELTO [Suspect]
     Indication: DEEP VEIN THROMBOSIS
     Route: 048
     Dates: start: 20130724
  3. ADCAL D3 [Concomitant]
     Indication: OSTEOPOROSIS
     Route: 048
  4. ALLOPURINOL [Concomitant]
     Indication: GOUT
     Route: 048
  5. SOTALOL [Concomitant]
     Route: 048
  6. DENOSUMAB [Concomitant]
     Indication: OSTEOPOROSIS
     Route: 058
  7. DIGOXIN [Concomitant]
     Route: 048
  8. LISINOPRIL [Concomitant]
     Route: 065
  9. ATORVASTATIN [Concomitant]
     Indication: MYOCARDIAL ISCHAEMIA
     Route: 048
  10. AMITRIPTYLINE [Concomitant]
     Indication: PAIN
     Route: 048

REACTIONS (1)
  - Pulmonary embolism [Fatal]
